FAERS Safety Report 7414621-5 (Version None)
Quarter: 2011Q2

REPORT INFORMATION
  Report Type: 
  Country: None (occurrence: None)
  Receive Date: 20110411
  Receipt Date: 20110411
  Transmission Date: 20111010
  Serious: Yes (Disabling)
  Sender: FDA-Public Use
  Company Number: None

PATIENT
  Age: 50 Year
  Sex: Female
  Weight: 73.4827 kg

DRUGS (2)
  1. AVELOX [Suspect]
     Indication: SINUSITIS
     Dosage: 400 MG DAILY PO
     Route: 048
     Dates: start: 20110107, end: 20110128
  2. AVELOX [Suspect]
     Indication: LABYRINTHITIS
     Dosage: 400 MG DAILY PO
     Route: 048
     Dates: start: 20110107, end: 20110128

REACTIONS (2)
  - TENDON RUPTURE [None]
  - INSOMNIA [None]
